FAERS Safety Report 4402350-1 (Version None)
Quarter: 2004Q3

REPORT INFORMATION
  Report Type: 
  Country: None (occurrence: None)
  Receive Date: 20040720
  Receipt Date: 20040504
  Transmission Date: 20050211
  Serious: Yes (Other)
  Sender: FDA-Public Use
  Company Number: PHEH2004US04929

PATIENT
  Age: 52 Year
  Sex: Female

DRUGS (9)
  1. ZOMETA [Suspect]
     Indication: METASTASES TO BONE
     Dosage: 4 MG MONTHLY
     Route: 042
     Dates: start: 20011129
  2. WARFARIN SODIUM [Concomitant]
     Dosage: 1 MG, QD
  3. PREDNISONE [Concomitant]
     Indication: SKIN REACTION
     Dosage: 5 MG, UNK
     Dates: start: 20030501
  4. IBUPROFEN [Concomitant]
     Dosage: 800 MG, QD
  5. ACCUPRIL [Concomitant]
  6. FEMARA [Concomitant]
  7. NAVELBINE [Concomitant]
     Indication: CARCINOMA
     Dates: start: 20030601, end: 20030801
  8. TAXOTERE [Concomitant]
     Indication: CARCINOMA
     Dates: start: 20030401, end: 20030501
  9. RADIATION THERAPY [Concomitant]
     Indication: INTERVERTEBRAL DISC DISORDER
     Dosage: 3000CGY
     Dates: start: 20010103, end: 20010116

REACTIONS (5)
  - ASEPTIC NECROSIS BONE [None]
  - BONE DISORDER [None]
  - ERYTHEMA MULTIFORME [None]
  - STEVENS-JOHNSON SYNDROME [None]
  - TOOTH EXTRACTION [None]
